FAERS Safety Report 8315357-9 (Version None)
Quarter: 2012Q2

REPORT INFORMATION
  Report Type: 
  Country: None (occurrence: None)
  Receive Date: 20120426
  Receipt Date: 20120418
  Transmission Date: 20120825
  Serious: Yes (Other)
  Sender: FDA-Public Use
  Company Number: JP-VERTEX PHARMACEUTICALS INC.-AE-2012-005829

PATIENT
  Age: 61 Year
  Sex: Female

DRUGS (9)
  1. PEG-INTRON [Concomitant]
     Indication: HEPATITIS C
     Route: 051
     Dates: start: 20120229, end: 20120229
  2. URSO 250 [Concomitant]
     Route: 048
  3. REBETOL [Concomitant]
     Indication: HEPATITIS C
     Route: 048
     Dates: start: 20120229, end: 20120306
  4. PEG-INTRON [Concomitant]
     Route: 051
     Dates: start: 20120328, end: 20120328
  5. TELAVIC (TELAPREVIR) [Suspect]
     Indication: HEPATITIS C
     Route: 048
     Dates: start: 20120229, end: 20120306
  6. PRAVASTATIN SODIUM [Concomitant]
     Route: 048
     Dates: start: 20120229, end: 20120319
  7. REBETOL [Concomitant]
     Route: 048
     Dates: start: 20120328, end: 20120331
  8. XYZAL [Concomitant]
     Route: 048
     Dates: start: 20120229, end: 20120319
  9. TELAVIC (TELAPREVIR) [Suspect]
     Route: 048
     Dates: start: 20120328, end: 20120331

REACTIONS (2)
  - ASCITES [None]
  - PLEURAL EFFUSION [None]
